FAERS Safety Report 23736432 (Version 3)
Quarter: 2024Q2

REPORT INFORMATION
  Report Type: Spontaneous
  Country: US (occurrence: US)
  Receive Date: 20240412
  Receipt Date: 20240426
  Transmission Date: 20240716
  Serious: Yes (Hospitalization, Other)
  Sender: FDA-Public Use
  Company Number: None

PATIENT

DRUGS (7)
  1. LIDOCAINE [Suspect]
     Active Substance: LIDOCAINE
     Indication: Cardiac operation
     Dosage: 15 MILLILITER EVERY 2 HOURS (AUTO BOLUS),
     Route: 065
  2. LIDOCAINE [Suspect]
     Active Substance: LIDOCAINE
     Dosage: 10 MILLILITER EVERY 30 MINUTES (DEMAND BOLUS)
     Route: 065
  3. Nitric oxide (iNO) [Concomitant]
     Indication: Product used for unknown indication
     Dosage: UNK, 20 PPM
  4. Nitric oxide (iNO) [Concomitant]
     Dosage: ON POD 3 TAPERED
  5. Nitric oxide (iNO) [Concomitant]
     Dosage: ON POD 2 TAPERED
  6. EPINEPHRINE [Concomitant]
     Active Substance: EPINEPHRINE
     Indication: Product used for unknown indication
     Dosage: 0.08 UG/KG/MIN
     Route: 065
  7. EPINEPHRINE [Concomitant]
     Active Substance: EPINEPHRINE
     Dosage: UNK,REDUCED TO 0.01 UG/KG/MIN ON POD 2
     Route: 065

REACTIONS (5)
  - Local anaesthetic systemic toxicity [Recovered/Resolved]
  - Drug level increased [Recovered/Resolved]
  - Blood pressure systolic increased [Recovered/Resolved]
  - Pulmonary hypertension [Recovered/Resolved]
  - Cardiovascular insufficiency [Recovered/Resolved]
